FAERS Safety Report 6244814-4 (Version None)
Quarter: 2009Q2

REPORT INFORMATION
  Report Type: 
  Country: None (occurrence: None)
  Receive Date: 20090625
  Receipt Date: 20090619
  Transmission Date: 20091009
  Serious: Yes (Hospitalization)
  Sender: FDA-Public Use
  Company Number: GB-WATSON-2009-04673

PATIENT
  Age: 48 Year
  Sex: Male

DRUGS (2)
  1. BACLOFEN [Suspect]
     Indication: INTENTIONAL OVERDOSE
     Dosage: TOTAL OF 840 MG
     Route: 048
  2. QUETIAPINE FUMARATE [Suspect]
     Indication: INTENTIONAL OVERDOSE
     Dosage: TOTAL OF 8400 MG
     Route: 048

REACTIONS (3)
  - COMA [None]
  - DIABETES INSIPIDUS [None]
  - INTENTIONAL OVERDOSE [None]
